FAERS Safety Report 19594542 (Version 1)
Quarter: 2021Q3

REPORT INFORMATION
  Report Type: Other
  Country: US (occurrence: US)
  Receive Date: 20210722
  Receipt Date: 20210722
  Transmission Date: 20211014
  Serious: Yes (Death)
  Sender: FDA-Public Use
  Company Number: US-ROCHE-2800191

PATIENT
  Sex: Male

DRUGS (2)
  1. ESBRIET [Suspect]
     Active Substance: PIRFENIDONE
     Indication: CHRONIC OBSTRUCTIVE PULMONARY DISEASE
  2. ESBRIET [Suspect]
     Active Substance: PIRFENIDONE
     Indication: PULMONARY FIBROSIS
     Route: 048
     Dates: start: 20200109

REACTIONS (9)
  - Hepatocellular carcinoma [Fatal]
  - Hyperhidrosis [Unknown]
  - Diarrhoea [Unknown]
  - Decreased appetite [Unknown]
  - Tremor [Unknown]
  - Drug ineffective [Unknown]
  - Amnesia [Unknown]
  - Nausea [Unknown]
  - Asthenia [Unknown]
